FAERS Safety Report 11421106 (Version 2)
Quarter: 2015Q3

REPORT INFORMATION
  Report Type: Spontaneous
  Country: US (occurrence: US)
  Receive Date: 20150826
  Receipt Date: 20150902
  Transmission Date: 20151125
  Serious: Yes (Other)
  Sender: FDA-Public Use
  Company Number: CHPA2015US009095

PATIENT
  Age: 70 Year
  Sex: Female

DRUGS (1)
  1. ASCRIPTIN [Suspect]
     Active Substance: ASPIRIN
     Indication: CARDIAC DISORDER
     Dosage: 1 DF, UNK
     Route: 048

REACTIONS (1)
  - Arterial occlusive disease [Recovered/Resolved]
